FAERS Safety Report 14902617 (Version 1)
Quarter: 2018Q2

REPORT INFORMATION
  Report Type: Spontaneous
  Country: US (occurrence: US)
  Receive Date: 20180516
  Receipt Date: 20180516
  Transmission Date: 20180711
  Serious: No
  Sender: FDA-Public Use
  Company Number: US-SA-2017SA084474

PATIENT
  Age: 64 Year
  Sex: Female

DRUGS (5)
  1. LANTUS SOLOSTAR [Suspect]
     Active Substance: INSULIN GLARGINE
     Indication: TYPE 2 DIABETES MELLITUS
     Dosage: DOSE:50 UNIT(S)
     Route: 051
     Dates: start: 201705
  2. LEVEMIR [Concomitant]
     Active Substance: INSULIN DETEMIR
  3. GLIMEPIRIDE. [Concomitant]
     Active Substance: GLIMEPIRIDE
  4. SOLOSTAR [Concomitant]
     Active Substance: DEVICE
     Indication: TYPE 2 DIABETES MELLITUS
     Route: 051
     Dates: start: 201705
  5. NOVOLOG [Suspect]
     Active Substance: INSULIN ASPART
     Route: 065

REACTIONS (3)
  - Fluid retention [Unknown]
  - Blood glucose increased [Unknown]
  - Joint swelling [Unknown]

NARRATIVE: CASE EVENT DATE: 201705
